FAERS Safety Report 5941337-4 (Version None)
Quarter: 2008Q4

REPORT INFORMATION
  Report Type: 
  Country: None (occurrence: None)
  Receive Date: 20081105
  Receipt Date: 20081024
  Transmission Date: 20090506
  Serious: Yes (Hospitalization)
  Sender: FDA-Public Use
  Company Number: NSADSS2003000058

PATIENT
  Age: 74 Year
  Sex: Male
  Weight: 73.94 kg

DRUGS (9)
  1. REMICADE [Suspect]
     Route: 041
     Dates: start: 20020618
  2. REMICADE [Suspect]
     Indication: RHEUMATOID ARTHRITIS
     Route: 041
     Dates: start: 20020618
  3. FOLIC ACID [Concomitant]
  4. ARAVA [Concomitant]
     Route: 048
  5. PREDNISONE TAB [Concomitant]
     Route: 048
  6. NEXIUM [Concomitant]
  7. DIOVAN [Concomitant]
  8. PROCARDIA XL [Concomitant]
  9. METHOTREXATE [Concomitant]

REACTIONS (4)
  - ANAEMIA [None]
  - LISTERIOSIS [None]
  - MENINGITIS [None]
  - MOUTH ULCERATION [None]
